FAERS Safety Report 5337059-3 (Version None)
Quarter: 2007Q2

REPORT INFORMATION
  Report Type: 
  Country: None (occurrence: None)
  Receive Date: 20070529
  Receipt Date: 20070516
  Transmission Date: 20071010
  Serious: Yes (Other)
  Sender: FDA-Public Use
  Company Number: US-ELI_LILLY_AND_COMPANY-US200704006221

PATIENT
  Age: 10 Year
  Sex: Male

DRUGS (8)
  1. CLONIDINE [Concomitant]
     Indication: SLEEP DISORDER
     Dosage: 0.2 MG, EACH EVENING
     Dates: start: 20030101, end: 20070101
  2. CLONIDINE [Concomitant]
     Dosage: 0.2 MG, EACH EVENING
     Dates: start: 20070101, end: 20070101
  3. CLONIDINE [Concomitant]
     Dosage: 0.1 MG, EACH EVENING
     Dates: start: 20070101
  4. STRATTERA [Suspect]
     Indication: ATTENTION DEFICIT/HYPERACTIVITY DISORDER
     Dosage: 18 MG, DAILY (1/D)
     Dates: start: 20030101
  5. STRATTERA [Suspect]
     Dosage: 25 MG, DAILY (1/D)
  6. STRATTERA [Suspect]
     Dosage: 35 MG, DAILY (1/D)
     Dates: end: 20070101
  7. STRATTERA [Suspect]
     Dosage: 25 MG, 2/D
     Dates: start: 20070101, end: 20070301
  8. STRATTERA [Suspect]
     Dosage: 35 MG, DAILY (1/D)
     Dates: start: 20070301, end: 20070425

REACTIONS (4)
  - DRUG WITHDRAWAL SYNDROME [None]
  - DYSKINESIA [None]
  - GRIMACING [None]
  - INSOMNIA [None]
